FAERS Safety Report 12476582 (Version 41)
Quarter: 2019Q3

REPORT INFORMATION
  Report Type: Report from Study
  Country: CA (occurrence: CA)
  Receive Date: 20160617
  Receipt Date: 20190912
  Transmission Date: 20191004
  Serious: Yes (Hospitalization, Other)
  Sender: FDA-Public Use
  Company Number: CA-SA-2016SA013386

PATIENT
  Age: 47 Year
  Sex: Male
  Weight: 90.71 kg

DRUGS (12)
  1. ALEMTUZUMAB [Suspect]
     Active Substance: ALEMTUZUMAB
     Indication: RELAPSING-REMITTING MULTIPLE SCLEROSIS
     Dosage: 12 MG,QD
     Route: 041
     Dates: start: 20160118, end: 20160120
  2. METHYLPREDNISOLONE. [Concomitant]
     Active Substance: METHYLPREDNISOLONE
     Dosage: 1 G,UNK
     Route: 042
  3. ACICLOVIR [Concomitant]
     Active Substance: ACYCLOVIR
     Dosage: 20 MG,BID
     Route: 048
     Dates: start: 20160108
  4. TYLENOL [Concomitant]
     Active Substance: ACETAMINOPHEN
     Dosage: 50 MG,UNK
     Route: 048
  5. PREGABALIN. [Concomitant]
     Active Substance: PREGABALIN
     Dosage: 2 DF,PRN
     Dates: start: 20151229
  6. INFLUENZA VACCINE INACT SPLIT VIRION 3V [Concomitant]
     Dosage: 1 DF,QD
     Dates: start: 20151126
  7. PREGABALIN. [Concomitant]
     Active Substance: PREGABALIN
     Dosage: 2 DF,PRN
     Dates: start: 20160126
  8. PREGABALIN. [Concomitant]
     Active Substance: PREGABALIN
     Dosage: 2 DF,PRN
     Dates: start: 20160215
  9. RANITIDINE. [Concomitant]
     Active Substance: RANITIDINE
     Dosage: 150 MG,UNK
     Route: 048
  10. REACTINE [CETIRIZINE HYDROCHLORIDE] [Concomitant]
     Active Substance: CETIRIZINE HYDROCHLORIDE
     Dosage: 10 MG,UNK
     Route: 048
  11. PREGABALIN. [Concomitant]
     Active Substance: PREGABALIN
     Dosage: 2 DF,PRN
     Dates: start: 20160427
  12. SILDENAFIL CITRATE. [Concomitant]
     Active Substance: SILDENAFIL CITRATE
     Dosage: UNK UNK,PRN
     Dates: start: 20151205

REACTIONS (27)
  - Chills [Recovered/Resolved]
  - Glomerular filtration rate decreased [Recovered/Resolved]
  - Chest discomfort [Recovered/Resolved]
  - Red blood cell count increased [Not Recovered/Not Resolved]
  - Herpes zoster [Recovering/Resolving]
  - Facial pain [Recovering/Resolving]
  - Heart rate increased [Recovered/Resolved]
  - Fall [Unknown]
  - Haemoglobin increased [Not Recovered/Not Resolved]
  - Blood creatinine increased [Not Recovered/Not Resolved]
  - Crystal urine present [Unknown]
  - Pain of skin [Recovering/Resolving]
  - Platelet count increased [Recovered/Resolved]
  - Granulocyte count increased [Recovered/Resolved]
  - White blood cell count increased [Recovered/Resolved]
  - Neutrophil count increased [Recovered/Resolved]
  - Red cell distribution width increased [Recovered/Resolved]
  - Lymphocyte count decreased [Recovered/Resolved]
  - Paraesthesia [Recovering/Resolving]
  - Body temperature increased [Recovered/Resolved]
  - Dyspnoea [Recovered/Resolved]
  - Neutropenia [Not Recovered/Not Resolved]
  - Neutrophil count decreased [Recovered/Resolved]
  - Pneumonia [Recovered/Resolved]
  - Asthenia [Recovered/Resolved]
  - Monocyte count increased [Recovered/Resolved]
  - Haematocrit increased [Not Recovered/Not Resolved]

NARRATIVE: CASE EVENT DATE: 20160119
